FAERS Safety Report 12299380 (Version 1)
Quarter: 2016Q2

REPORT INFORMATION
  Report Type: Spontaneous
  Country: US (occurrence: US)
  Receive Date: 20160425
  Receipt Date: 20160425
  Transmission Date: 20160815
  Serious: Yes (Hospitalization)
  Sender: FDA-Public Use
  Company Number: US-AXELLIA-000912

PATIENT
  Age: 57 Year
  Sex: Male

DRUGS (5)
  1. FLUCONAZOLE. [Concomitant]
     Active Substance: FLUCONAZOLE
     Route: 048
  2. COLISTIN [Suspect]
     Active Substance: COLISTIN
     Indication: PRODUCT USED FOR UNKNOWN INDICATION
     Route: 042
  3. ZANAFLEX [Suspect]
     Active Substance: TIZANIDINE HYDROCHLORIDE
     Indication: PRODUCT USED FOR UNKNOWN INDICATION
     Dosage: AT BEDTIME
  4. POLYMYXIN B. [Suspect]
     Active Substance: POLYMYXIN B
     Dosage: FOLLOWED BY 100 MG EVERY 12 HOURS
     Route: 042
  5. MEROPENEM. [Concomitant]
     Active Substance: MEROPENEM
     Route: 042

REACTIONS (5)
  - Asthenia [Unknown]
  - Movement disorder [Unknown]
  - Respiratory paralysis [Unknown]
  - Fall [Unknown]
  - Dysarthria [Unknown]
